FAERS Safety Report 16166530 (Version 2)
Quarter: 2019Q2

REPORT INFORMATION
  Report Type: Spontaneous
  Country: US (occurrence: US)
  Receive Date: 20190407
  Receipt Date: 20190514
  Transmission Date: 20190711
  Serious: No
  Sender: FDA-Public Use
  Company Number: US-BIOGEN-2019BI00710826

PATIENT
  Age: 39 Year
  Sex: Female

DRUGS (3)
  1. TECFIDERA [Suspect]
     Active Substance: DIMETHYL FUMARATE
     Route: 065
  2. TECFIDERA [Suspect]
     Active Substance: DIMETHYL FUMARATE
     Indication: MULTIPLE SCLEROSIS
     Route: 065
     Dates: start: 20190307, end: 20190309
  3. TECFIDERA [Suspect]
     Active Substance: DIMETHYL FUMARATE
     Dosage: STARTER PACK
     Route: 048
     Dates: start: 201903

REACTIONS (6)
  - Influenza [Not Recovered/Not Resolved]
  - Laziness [Unknown]
  - Hot flush [Recovered/Resolved]
  - Pruritus [Unknown]
  - Flushing [Unknown]
  - Product dose omission [Unknown]

NARRATIVE: CASE EVENT DATE: 20190307
